FAERS Safety Report 5492830-2 (Version None)
Quarter: 2007Q4

REPORT INFORMATION
  Report Type: 
  Country: None (occurrence: None)
  Receive Date: 20071023
  Receipt Date: 20071022
  Transmission Date: 20080405
  Serious: Yes (Hospitalization)
  Sender: FDA-Public Use
  Company Number: JP-SP-2007-02520

PATIENT
  Age: 64 Year
  Sex: Male

DRUGS (3)
  1. IMMUCYST [Suspect]
     Indication: BLADDER CANCER
     Route: 043
     Dates: start: 20070112, end: 20070308
  2. LEVOFLOXACIN [Concomitant]
     Dates: start: 20070112, end: 20070123
  3. PYRIDOXAL PHOSPHATE [Concomitant]
     Dates: start: 20070119, end: 20070328

REACTIONS (4)
  - CONTRACTED BLADDER [None]
  - DYSURIA [None]
  - POLLAKIURIA [None]
  - PYREXIA [None]
